FAERS Safety Report 6761809-2 (Version None)
Quarter: 2010Q2

REPORT INFORMATION
  Report Type: 
  Country: None (occurrence: None)
  Receive Date: 20100609
  Receipt Date: 20100601
  Transmission Date: 20101027
  Serious: Yes (Hospitalization)
  Sender: FDA-Public Use
  Company Number: DE-ASTRAZENECA-2010SE25351

PATIENT
  Age: 38 Year
  Sex: Female

DRUGS (10)
  1. SEROQUEL [Suspect]
     Indication: DEPRESSION
     Route: 048
     Dates: start: 20090201
  2. SEROQUEL [Suspect]
     Indication: SCHIZOPHRENIA
     Route: 048
     Dates: start: 20090201
  3. SEROQUEL [Suspect]
     Route: 048
     Dates: start: 20090301
  4. SEROQUEL [Suspect]
     Route: 048
     Dates: start: 20090301
  5. SEROQUEL [Suspect]
     Route: 048
  6. SEROQUEL [Suspect]
     Route: 048
  7. HALOPERIDOL [Concomitant]
  8. HALDOL [Concomitant]
  9. LORAZEPAM [Concomitant]
  10. MIRTAZAPINE [Concomitant]
     Dates: start: 20090101

REACTIONS (3)
  - COMPLETED SUICIDE [None]
  - DELUSION [None]
  - DISEASE PROGRESSION [None]
